FAERS Safety Report 8840616 (Version 2)
Quarter: 2012Q4

REPORT INFORMATION
  Report Type: 
  Country: GB (occurrence: GB)
  Receive Date: 20121015
  Receipt Date: 20121103
  Transmission Date: 20130627
  Serious: Yes (Hospitalization)
  Sender: FDA-Public Use
  Company Number: GB-TEVA-364289ISR

PATIENT
  Sex: Female

DRUGS (10)
  1. QVAR [Suspect]
     Dosage: 100 Microgram Daily;
     Route: 055
     Dates: start: 20121002, end: 20121005
  2. PERINDOPRIL [Concomitant]
  3. ASPIRIN [Concomitant]
  4. OMEPRAZOLE [Concomitant]
  5. FUROSEMIDE [Concomitant]
  6. AMLODIPINE [Concomitant]
  7. TRAMADOL [Concomitant]
  8. SIMVASTATIN [Concomitant]
  9. BISOPROLOL [Concomitant]
  10. FEXOFENADINE [Concomitant]

REACTIONS (5)
  - Jaw disorder [Recovered/Resolved]
  - Lymphadenopathy [Recovered/Resolved]
  - Swelling face [Recovered/Resolved]
  - Facial pain [Recovered/Resolved]
  - Oral pain [Recovered/Resolved]
